FAERS Safety Report 15467327 (Version 2)
Quarter: 2018Q4

REPORT INFORMATION
  Report Type: Report from Study
  Country: US (occurrence: US)
  Receive Date: 20181005
  Receipt Date: 20181019
  Transmission Date: 20190204
  Serious: Yes (Other)
  Sender: FDA-Public Use
  Company Number: US-ROCHE-2190906

PATIENT
  Sex: Female

DRUGS (1)
  1. OCREVUS [Suspect]
     Active Substance: OCRELIZUMAB
     Indication: RELAPSING MULTIPLE SCLEROSIS
     Route: 065

REACTIONS (5)
  - Multiple sclerosis relapse [Not Recovered/Not Resolved]
  - Respiratory tract infection [Recovered/Resolved]
  - Myalgia [Not Recovered/Not Resolved]
  - Myositis [Not Recovered/Not Resolved]
  - Chest pain [Not Recovered/Not Resolved]
